FAERS Safety Report 8778134 (Version 1)
Quarter: 2012Q4

REPORT INFORMATION
  Report Type: 
  Country: US (occurrence: US)
  Receive Date: 20120912
  Receipt Date: 20120912
  Transmission Date: 20130627
  Serious: Yes (Hospitalization, Disabling, Other)
  Sender: FDA-Public Use
  Company Number: US-ASTRAZENECA-2012SE69861

PATIENT
  Age: 48 Year
  Sex: Female

DRUGS (2)
  1. NEXIUM [Suspect]
     Indication: GASTROOESOPHAGEAL REFLUX DISEASE
     Route: 048
     Dates: start: 1990
  2. NEXIUM [Suspect]
     Indication: GASTROOESOPHAGEAL REFLUX DISEASE
     Route: 048

REACTIONS (11)
  - Multiple sclerosis [Unknown]
  - Fibromyalgia [Unknown]
  - Bone disorder [Unknown]
  - Gastrooesophageal sphincter insufficiency [Unknown]
  - Impaired work ability [Unknown]
  - Major depression [Unknown]
  - Mental disorder [Unknown]
  - Anxiety [Unknown]
  - Dehydration [Unknown]
  - Intervertebral disc degeneration [Unknown]
  - Off label use [Unknown]
